FAERS Safety Report 17143254 (Version 3)
Quarter: 2019Q4

REPORT INFORMATION
  Report Type: Report from Study
  Country: US (occurrence: US)
  Receive Date: 20191212
  Receipt Date: 20191226
  Transmission Date: 20200122
  Serious: Yes (Other)
  Sender: FDA-Public Use
  Company Number: NVSC2019US048532

PATIENT
  Age: 62 Year
  Sex: Female

DRUGS (3)
  1. MAYZENT [Suspect]
     Active Substance: SIPONIMOD
     Dosage: 2 MG, QD
     Route: 048
     Dates: start: 20191203, end: 20191203
  2. MAYZENT [Suspect]
     Active Substance: SIPONIMOD
     Indication: SECONDARY PROGRESSIVE MULTIPLE SCLEROSIS
     Dosage: 2 MG QD
     Route: 048
     Dates: start: 20191023
  3. MAYZENT [Suspect]
     Active Substance: SIPONIMOD
     Dosage: 2 MG, QD
     Route: 048
     Dates: start: 20191030

REACTIONS (9)
  - Gait disturbance [Unknown]
  - Glaucoma [Unknown]
  - Blepharospasm [Recovered/Resolved]
  - Tremor [Unknown]
  - Abdominal discomfort [Recovering/Resolving]
  - Pollakiuria [Unknown]
  - Vision blurred [Unknown]
  - Vision blurred [Recovered/Resolved]
  - Stress [Unknown]

NARRATIVE: CASE EVENT DATE: 20191023
